FAERS Safety Report 7584805-4 (Version None)
Quarter: 2011Q2

REPORT INFORMATION
  Report Type: 
  Country: None (occurrence: None)
  Receive Date: 20110630
  Receipt Date: 20110622
  Transmission Date: 20111010
  Serious: Yes (Other)
  Sender: FDA-Public Use
  Company Number: PHFR2011GB01401

PATIENT
  Sex: Male

DRUGS (8)
  1. SERTRALINE [Concomitant]
     Indication: DEPRESSION
     Dosage: 150 MG, UNK
     Route: 048
  2. ATENOLOL [Concomitant]
     Indication: TACHYCARDIA
     Dosage: 50 MG, UNK
     Route: 048
  3. VALPROATE SODIUM [Concomitant]
     Indication: PROPHYLAXIS
     Dosage: 600 MG, UNK
     Route: 048
  4. WARFARIN SODIUM [Concomitant]
     Indication: DEEP VEIN THROMBOSIS
     Dosage: UNK
     Route: 065
  5. PRAVASTATIN [Concomitant]
     Indication: BLOOD CHOLESTEROL INCREASED
     Dosage: 40 MG, UNK
     Route: 048
  6. CLOZAPINE [Suspect]
     Indication: SCHIZOPHRENIA
     Dosage: 500 MG, UNK
     Route: 048
     Dates: start: 20100714
  7. OMEPRAZOLE [Concomitant]
     Indication: GASTROOESOPHAGEAL REFLUX DISEASE
     Dosage: 4 MG, UNK
     Route: 048
  8. DOMPERIDONE [Concomitant]
     Indication: NAUSEA
     Dosage: 30 MG, UNK
     Route: 048

REACTIONS (1)
  - TOOTH ABSCESS [None]
